FAERS Safety Report 12621555 (Version 1)
Quarter: 2016Q3

REPORT INFORMATION
  Report Type: Spontaneous
  Country: US (occurrence: None)
  Receive Date: 20160803
  Receipt Date: 20160803
  Transmission Date: 20161109
  Serious: No
  Sender: FDA-Public Use
  Company Number: None

PATIENT
  Age: 66 Year
  Sex: Female
  Weight: 55.79 kg

DRUGS (23)
  1. PANTOPRAZOLE SODIUM. [Concomitant]
     Active Substance: PANTOPRAZOLE SODIUM
  2. TRAMADOL HCL [Concomitant]
     Active Substance: TRAMADOL HYDROCHLORIDE
  3. NEXIUM [Concomitant]
     Active Substance: ESOMEPRAZOLE MAGNESIUM
  4. HEALTH ALLIANCE [Concomitant]
  5. CORTISOL [Concomitant]
     Active Substance: HYDROCORTISONE
  6. CYCLOBENZAPRINE HCL [Concomitant]
     Active Substance: CYCLOBENZAPRINE HYDROCHLORIDE
  7. OXYBUTYNIN CHLORIDE. [Concomitant]
     Active Substance: OXYBUTYNIN CHLORIDE
  8. PREDNISONE. [Concomitant]
     Active Substance: PREDNISONE
  9. ARMOUR THYROID [Concomitant]
     Active Substance: THYROID, PORCINE
  10. CELEBREX [Concomitant]
     Active Substance: CELECOXIB
  11. ESTRADIOL WATSON LABS 1MG LABS/TEVA 0.5MG TABLET [Suspect]
     Active Substance: ESTRADIOL
     Indication: MENOPAUSAL SYMPTOMS
     Dosage: 1 MG 1/4 TABLET ONCE A DAY BY MOUTH
     Route: 048
     Dates: start: 20151109, end: 20160719
  12. PREMARIN [Concomitant]
     Active Substance: ESTROGENS, CONJUGATED
  13. ALPRAZOLAM. [Concomitant]
     Active Substance: ALPRAZOLAM
  14. PROMETRIUM [Concomitant]
     Active Substance: PROGESTERONE
  15. VALACYCLOVIR HCL [Concomitant]
     Active Substance: VALACYCLOVIR HYDROCHLORIDE
  16. VALIUM [Concomitant]
     Active Substance: DIAZEPAM
  17. FREESTYLE LITE TEST STRIPS [Concomitant]
  18. VOLTAREN [Concomitant]
     Active Substance: DICLOFENAC SODIUM
  19. ZOLPIDEM TARTRATE. [Concomitant]
     Active Substance: ZOLPIDEM TARTRATE
  20. BIEST/PROGESTERONE/TESTOSTERONE [Concomitant]
  21. DEXAMETHASONE. [Concomitant]
     Active Substance: DEXAMETHASONE
  22. FLUDROCORTISONE ACETATE. [Concomitant]
     Active Substance: FLUDROCORTISONE ACETATE
  23. GABAPENTIN. [Concomitant]
     Active Substance: GABAPENTIN

REACTIONS (1)
  - Drug level increased [None]

NARRATIVE: CASE EVENT DATE: 20160101
